FAERS Safety Report 12118820 (Version 1)
Quarter: 2016Q1

REPORT INFORMATION
  Report Type: Spontaneous
  Country: US (occurrence: None)
  Receive Date: 20160225
  Receipt Date: 20160225
  Transmission Date: 20160526
  Serious: Yes (Other)
  Sender: FDA-Public Use
  Company Number: None

PATIENT
  Age: 47 Year
  Sex: Male

DRUGS (1)
  1. HUMIRA [Suspect]
     Active Substance: ADALIMUMAB
     Indication: CROHN^S DISEASE
     Dosage: EVERY 2 WKS?FIRST SHIPPED ON 1/25/2016
     Route: 058
     Dates: start: 20160125

REACTIONS (1)
  - Sinusitis [None]

NARRATIVE: CASE EVENT DATE: 20160224
